FAERS Safety Report 18526936 (Version 1)
Quarter: 2020Q4

REPORT INFORMATION
  Report Type: Spontaneous
  Country: US (occurrence: US)
  Receive Date: 20201119
  Receipt Date: 20201119
  Transmission Date: 20210114
  Serious: No
  Sender: FDA-Public Use
  Company Number: None

PATIENT
  Age: 68 Year
  Sex: Female
  Weight: 51.57 kg

DRUGS (12)
  1. PANTOPRAZOLE 40MG [Concomitant]
     Active Substance: PANTOPRAZOLE SODIUM
  2. LIDOCAINE-PRILOCAINE 2.5-2.5% [Concomitant]
  3. NEULASTA [Concomitant]
     Active Substance: PEGFILGRASTIM
  4. LASIX [Concomitant]
     Active Substance: FUROSEMIDE
  5. FERROUS SULFATE 325MG [Concomitant]
     Active Substance: FERROUS SULFATE
  6. CAPECITABINE. [Suspect]
     Active Substance: CAPECITABINE
     Indication: BREAST CANCER FEMALE
     Route: 048
     Dates: start: 20200617
  7. FUROSEMIDE 20MG [Concomitant]
     Active Substance: FUROSEMIDE
  8. MILK OF MAGNESIA [Concomitant]
     Active Substance: MAGNESIUM HYDROXIDE
  9. TAMSULOSIN 0.4MG [Concomitant]
     Active Substance: TAMSULOSIN
  10. POLYETHYLENE GLYCOL 3350. [Concomitant]
     Active Substance: POLYETHYLENE GLYCOL 3350
  11. DOCUSATE 100MG [Concomitant]
     Active Substance: DOCUSATE
  12. SPIRONOLACTONE 25MG [Concomitant]
     Active Substance: SPIRONOLACTONE

REACTIONS (1)
  - Ascites [None]

NARRATIVE: CASE EVENT DATE: 20201119
